FAERS Safety Report 9759714 (Version 2)
Quarter: 2015Q3

REPORT INFORMATION
  Report Type: Spontaneous
  Country: US (occurrence: US)
  Receive Date: 20131216
  Receipt Date: 20150806
  Transmission Date: 20151125
  Serious: No
  Sender: FDA-Public Use
  Company Number: US-GILEAD-2010-0029064

PATIENT
  Age: 66 Year
  Sex: Female
  Weight: 83.01 kg

DRUGS (13)
  1. LORAZEPAM. [Concomitant]
     Active Substance: LORAZEPAM
  2. PROTONIX [Concomitant]
     Active Substance: PANTOPRAZOLE SODIUM
  3. CALCIUM [Concomitant]
     Active Substance: CALCIUM
  4. HYDROMORPHONE [Concomitant]
     Active Substance: HYDROMORPHONE
  5. LETAIRIS [Suspect]
     Active Substance: AMBRISENTAN
     Indication: PULMONARY ARTERIAL HYPERTENSION
     Route: 048
     Dates: start: 20100413
  6. SPIRIVA [Concomitant]
     Active Substance: TIOTROPIUM BROMIDE MONOHYDRATE
  7. ASPIRIN. [Concomitant]
     Active Substance: ASPIRIN
  8. FISH OIL [Concomitant]
     Active Substance: FISH OIL
  9. HYDROCHLOROTHIAZIDE/TRIAMTERENE [Concomitant]
  10. ISOSORBIDE MN [Concomitant]
     Active Substance: ISOSORBIDE MONONITRATE
  11. VITAMIN E [Concomitant]
     Active Substance: .ALPHA.-TOCOPHEROL
  12. GABAPENTIN. [Concomitant]
     Active Substance: GABAPENTIN
  13. ACTOS [Concomitant]
     Active Substance: PIOGLITAZONE HYDROCHLORIDE

REACTIONS (2)
  - Swelling [Unknown]
  - Fluid retention [Unknown]
